FAERS Safety Report 14849073 (Version 1)
Quarter: 2018Q2

REPORT INFORMATION
  Report Type: Spontaneous
  Country: AT (occurrence: AT)
  Receive Date: 20180504
  Receipt Date: 20180504
  Transmission Date: 20180711
  Serious: Yes (Other)
  Sender: FDA-Public Use
  Company Number: AT-MYLANLABS-2018M1029427

PATIENT
  Age: 50 Year
  Sex: Female
  Weight: 65 kg

DRUGS (1)
  1. CIPROFLOXACIN. [Suspect]
     Active Substance: CIPROFLOXACIN
     Indication: URINARY TRACT INFECTION
     Dosage: 500 MG, BID
     Route: 048

REACTIONS (28)
  - Back pain [Unknown]
  - Anxiety [Unknown]
  - Hair growth abnormal [Not Recovered/Not Resolved]
  - Hypoacusis [Not Recovered/Not Resolved]
  - Urinary retention [Unknown]
  - Dry eye [Not Recovered/Not Resolved]
  - Oedema peripheral [Not Recovered/Not Resolved]
  - Panic attack [Unknown]
  - Urinary tract pain [Not Recovered/Not Resolved]
  - Gait disturbance [Unknown]
  - Arrhythmia [Not Recovered/Not Resolved]
  - Myositis [Not Recovered/Not Resolved]
  - Cognitive disorder [Not Recovered/Not Resolved]
  - Food intolerance [Not Recovered/Not Resolved]
  - Eyelid oedema [Not Recovered/Not Resolved]
  - Neuropathy peripheral [Recovering/Resolving]
  - Tendonitis [Not Recovered/Not Resolved]
  - Renal pain [Not Recovered/Not Resolved]
  - Feeling of body temperature change [Not Recovered/Not Resolved]
  - Dry skin [Not Recovered/Not Resolved]
  - Sensory disturbance [Unknown]
  - Pain in extremity [Unknown]
  - Depersonalisation/derealisation disorder [Unknown]
  - Diarrhoea [Unknown]
  - Peripheral coldness [Not Recovered/Not Resolved]
  - Metabolic disorder [Not Recovered/Not Resolved]
  - Tinnitus [Not Recovered/Not Resolved]
  - Asthenia [Not Recovered/Not Resolved]
